FAERS Safety Report 6697779-5 (Version None)
Quarter: 2010Q2

REPORT INFORMATION
  Report Type: 
  Country: None (occurrence: None)
  Receive Date: 20100423
  Receipt Date: 20100409
  Transmission Date: 20101027
  Serious: Yes (Other)
  Sender: FDA-Public Use
  Company Number: 2010SCPR000375

PATIENT
  Age: 60 Year
  Sex: Male

DRUGS (4)
  1. METRONIDAZOLE [Suspect]
     Indication: HEPATIC ENCEPHALOPATHY
     Dosage: 1.5 G, QD ; 750 MG, QD
  2. SPIRONOLACTONE [Concomitant]
  3. LACTULOSE [Concomitant]
  4. VITAMIN K NOS (VITAMIN K NOS) UNKNOWN [Concomitant]

REACTIONS (10)
  - ATAXIA [None]
  - CHOREA [None]
  - CONDITION AGGRAVATED [None]
  - DYSARTHRIA [None]
  - HEPATIC ENCEPHALOPATHY [None]
  - MOVEMENT DISORDER [None]
  - MYOCLONUS [None]
  - NERVOUS SYSTEM DISORDER [None]
  - NUCLEAR MAGNETIC RESONANCE IMAGING BRAIN ABNORMAL [None]
  - TOXIC ENCEPHALOPATHY [None]
